FAERS Safety Report 9800509 (Version 2)
Quarter: 2014Q1

REPORT INFORMATION
  Report Type: Spontaneous
  Country: US (occurrence: US)
  Receive Date: 20140107
  Receipt Date: 20140227
  Transmission Date: 20141002
  Serious: No
  Sender: FDA-Public Use
  Company Number: US-BIOGENIDEC-2014BI000819

PATIENT
  Age: 46 Year
  Sex: Female

DRUGS (10)
  1. TYSABRI [Suspect]
     Indication: RELAPSING-REMITTING MULTIPLE SCLEROSIS
     Route: 042
     Dates: start: 20120309
  2. AVONEX [Concomitant]
     Indication: MULTIPLE SCLEROSIS
     Route: 030
  3. CITOMEL [Concomitant]
  4. CLONAZAPAM [Concomitant]
  5. CELINIUM [Concomitant]
  6. KELP IODINE OTC [Concomitant]
  7. OMEGA 3, 6, 9 [Concomitant]
  8. SYNTHROID [Concomitant]
  9. INFLAMMAZYME [Concomitant]
  10. NUVIGIL [Concomitant]

REACTIONS (23)
  - Sinus disorder [Unknown]
  - Cough [Unknown]
  - Back pain [Unknown]
  - Memory impairment [Unknown]
  - Disturbance in attention [Unknown]
  - Sensory disturbance [Unknown]
  - Insomnia [Unknown]
  - Pollakiuria [Unknown]
  - Hearing impaired [Unknown]
  - Hypoaesthesia [Unknown]
  - Coordination abnormal [Unknown]
  - Areflexia [Unknown]
  - Gait disturbance [Unknown]
  - Reflexes abnormal [Unknown]
  - Paraesthesia [Unknown]
  - Balance disorder [Unknown]
  - Oropharyngeal pain [Unknown]
  - Nasopharyngitis [Not Recovered/Not Resolved]
  - Fatigue [Unknown]
  - Constipation [Unknown]
  - Dizziness [Unknown]
  - Headache [Unknown]
  - Productive cough [Not Recovered/Not Resolved]
